FAERS Safety Report 8013615-9 (Version None)
Quarter: 2011Q4

REPORT INFORMATION
  Report Type: 
  Country: None (occurrence: None)
  Receive Date: 20111227
  Receipt Date: 20111227
  Transmission Date: 20120403
  Serious: Yes (Other)
  Sender: FDA-Public Use
  Company Number: None

PATIENT
  Age: 63 Year
  Sex: Female
  Weight: 52.1637 kg

DRUGS (1)
  1. CRESTOR [Suspect]
     Indication: BLOOD CHOLESTEROL INCREASED
     Dosage: 5 MG EVERY DAY
     Dates: start: 20110401

REACTIONS (4)
  - MUSCULAR WEAKNESS [None]
  - PELVIC FRACTURE [None]
  - HYPOAESTHESIA [None]
  - FALL [None]
